FAERS Safety Report 24892679 (Version 1)
Quarter: 2025Q1

REPORT INFORMATION
  Report Type: Report from Study
  Country: IN (occurrence: IN)
  Receive Date: 20250128
  Receipt Date: 20250128
  Transmission Date: 20250409
  Serious: Yes (Other)
  Sender: ROCHE
  Company Number: IN-ROCHE-10000130531

PATIENT
  Age: 64 Year
  Sex: Male

DRUGS (2)
  1. TECENTRIQ [Suspect]
     Active Substance: ATEZOLIZUMAB
     Indication: Hepatocellular carcinoma
     Dosage: 10TH CYCLE
     Route: 040
     Dates: start: 20231117
  2. TECENTRIQ [Suspect]
     Active Substance: ATEZOLIZUMAB
     Dosage: 11TH CYCLE
     Route: 040

REACTIONS (6)
  - Off label use [Unknown]
  - Liver disorder [Unknown]
  - Hepatic mass [Unknown]
  - Ill-defined disorder [Unknown]
  - Vascular neoplasm [Unknown]
  - Hepatocellular carcinoma [Unknown]

NARRATIVE: CASE EVENT DATE: 20240709
